FAERS Safety Report 6723478-7 (Version None)
Quarter: 2010Q2

REPORT INFORMATION
  Report Type: 
  Country: None (occurrence: None)
  Receive Date: 20100513
  Receipt Date: 20100512
  Transmission Date: 20101027
  Serious: Yes (Hospitalization)
  Sender: FDA-Public Use
  Company Number: FR-BRISTOL-MYERS SQUIBB COMPANY-15065188

PATIENT
  Age: 1 Year
  Sex: Female

DRUGS (1)
  1. APROVEL FILM-COATED TABS 300 MG [Suspect]
     Route: 048
     Dates: start: 20100415

REACTIONS (2)
  - MEDICATION ERROR [None]
  - NO ADVERSE EVENT [None]
